FAERS Safety Report 16790591 (Version 1)
Quarter: 2019Q3

REPORT INFORMATION
  Report Type: Report from Study
  Country: US (occurrence: US)
  Receive Date: 20190910
  Receipt Date: 20190910
  Transmission Date: 20191005
  Serious: Yes (Life-Threatening)
  Sender: FDA-Public Use
  Company Number: US-EISAI MEDICAL RESEARCH-EC-2019-061857

PATIENT
  Age: 67 Year
  Sex: Female
  Weight: 120.2 kg

DRUGS (25)
  1. OXYCODONE [Concomitant]
     Active Substance: OXYCODONE
  2. ERIBULIN [Suspect]
     Active Substance: ERIBULIN
     Indication: LEIOMYOSARCOMA
     Route: 042
     Dates: start: 20190725, end: 20190822
  3. METOPROLOL TARTRATE. [Concomitant]
     Active Substance: METOPROLOL TARTRATE
  4. POLYETHYLENE GLYCOL [Concomitant]
     Active Substance: POLYETHYLENE GLYCOLS
  5. PROCHLORPERAZINE. [Concomitant]
     Active Substance: PROCHLORPERAZINE
  6. FERROUS SULFATE. [Concomitant]
     Active Substance: FERROUS SULFATE
  7. MELOXICAM. [Concomitant]
     Active Substance: MELOXICAM
  8. ONDANSETRON [Concomitant]
     Active Substance: ONDANSETRON
  9. CYANOCOBALAMIN. [Concomitant]
     Active Substance: CYANOCOBALAMIN
  10. FUROSEMIDE. [Concomitant]
     Active Substance: FUROSEMIDE
  11. MULTIVITAMIN [Concomitant]
     Active Substance: VITAMINS
  12. PREGABALIN. [Concomitant]
     Active Substance: PREGABALIN
  13. ALBUTEROL INHALER [Concomitant]
     Active Substance: ALBUTEROL
  14. LORAZEPAM. [Concomitant]
     Active Substance: LORAZEPAM
  15. OXYCONTIN [Concomitant]
     Active Substance: OXYCODONE HYDROCHLORIDE
  16. NORTRIPTYLINE [Concomitant]
     Active Substance: NORTRIPTYLINE
  17. ROPINIROLE. [Concomitant]
     Active Substance: ROPINIROLE
  18. ACETOMINOPHEN [Concomitant]
     Active Substance: ACETAMINOPHEN
  19. PEMBROLIZUMAB. [Suspect]
     Active Substance: PEMBROLIZUMAB
     Indication: LEIOMYOSARCOMA
     Route: 041
     Dates: start: 20190725, end: 20190815
  20. CLONIDINE HCL [Concomitant]
     Active Substance: CLONIDINE HYDROCHLORIDE
  21. LACTULOSE. [Concomitant]
     Active Substance: LACTULOSE
  22. VITAMIN C [Concomitant]
     Active Substance: ASCORBIC ACID
  23. BUPROPION. [Concomitant]
     Active Substance: BUPROPION
  24. DOCUSATE SODIUM. [Concomitant]
     Active Substance: DOCUSATE SODIUM
  25. GUAIFENESIN-CODEINE [Concomitant]

REACTIONS (1)
  - Neutropenia [Unknown]

NARRATIVE: CASE EVENT DATE: 20190828
